FAERS Safety Report 21539685 (Version 10)
Quarter: 2024Q3

REPORT INFORMATION
  Report Type: Spontaneous
  Country: US (occurrence: US)
  Receive Date: 20221102
  Receipt Date: 20240712
  Transmission Date: 20241016
  Serious: No
  Sender: BIOGEN
  Company Number: US-BIOGEN-2022BI01166433

PATIENT
  Sex: Male

DRUGS (2)
  1. TYSABRI [Suspect]
     Active Substance: NATALIZUMAB
     Indication: Multiple sclerosis
     Route: 050
     Dates: start: 20220623
  2. TYSABRI [Suspect]
     Active Substance: NATALIZUMAB
     Dosage: INFUSED OVER 1 HOUR
     Route: 050

REACTIONS (5)
  - Memory impairment [Not Recovered/Not Resolved]
  - Cognitive disorder [Unknown]
  - Multiple sclerosis [Unknown]
  - Urinary retention [Unknown]
  - Dysuria [Unknown]
